FAERS Safety Report 24649365 (Version 3)
Quarter: 2025Q1

REPORT INFORMATION
  Report Type: Spontaneous
  Country: US (occurrence: US)
  Receive Date: 20241121
  Receipt Date: 20250109
  Transmission Date: 20250408
  Serious: No
  Sender: SANOFI AVENTIS
  Company Number: US-SA-2024SA336400

PATIENT
  Age: 26 Year
  Sex: Female

DRUGS (3)
  1. DUPIXENT [Suspect]
     Active Substance: DUPILUMAB
     Indication: Dermatitis atopic
     Route: 058
  2. DUPIXENT [Suspect]
     Active Substance: DUPILUMAB
     Route: 058
  3. DUPIXENT [Suspect]
     Active Substance: DUPILUMAB
     Dosage: 300 MG, QOW
     Route: 058

REACTIONS (11)
  - Dry mouth [Unknown]
  - Skin atrophy [Unknown]
  - Constipation [Unknown]
  - Tenderness [Unknown]
  - Vision blurred [Unknown]
  - Dermatitis atopic [Unknown]
  - Dry skin [Unknown]
  - Erythema [Unknown]
  - Dry eye [Unknown]
  - Skin exfoliation [Unknown]
  - Extra dose administered [Unknown]
